FAERS Safety Report 8581456-X (Version None)
Quarter: 2012Q3

REPORT INFORMATION
  Report Type: 
  Country: None (occurrence: None)
  Receive Date: 20120809
  Receipt Date: 20120802
  Transmission Date: 20120928
  Serious: Yes (Hospitalization)
  Sender: FDA-Public Use
  Company Number: FR-BRISTOL-MYERS SQUIBB COMPANY-16819476

PATIENT
  Age: 62 Year
  Sex: Female

DRUGS (2)
  1. PYOSTACINE [Concomitant]
     Dates: start: 20120727, end: 20120730
  2. IPILIMUMAB [Suspect]
     Indication: MALIGNANT MELANOMA
     Route: 042
     Dates: start: 20120615

REACTIONS (2)
  - THROMBOCYTOPENIA [None]
  - FEBRILE NEUTROPENIA [None]
